FAERS Safety Report 20095154 (Version 3)
Quarter: 2022Q1

REPORT INFORMATION
  Report Type: Spontaneous
  Country: JP (occurrence: JP)
  Receive Date: 20211122
  Receipt Date: 20220127
  Transmission Date: 20220423
  Serious: Yes (Hospitalization, Other)
  Sender: FDA-Public Use
  Company Number: JP-ASTELLAS-2021JP022407

PATIENT
  Age: 75 Year
  Sex: Male

DRUGS (1)
  1. XTANDI [Suspect]
     Active Substance: ENZALUTAMIDE
     Indication: Prostate cancer metastatic
     Route: 048

REACTIONS (2)
  - Endocarditis [Recovering/Resolving]
  - Urinary tract infection [Recovering/Resolving]
